FAERS Safety Report 8418852-7 (Version None)
Quarter: 2012Q2

REPORT INFORMATION
  Report Type: 
  Country: None (occurrence: None)
  Receive Date: 20120607
  Receipt Date: 20120531
  Transmission Date: 20120825
  Serious: Yes (Hospitalization)
  Sender: FDA-Public Use
  Company Number: IT-ROCHE-1074131

PATIENT
  Sex: Female

DRUGS (4)
  1. LEVOPRAID [Suspect]
     Indication: INTENTIONAL SELF-INJURY
     Route: 048
     Dates: start: 20120507, end: 20120507
  2. CLONAZEPAM [Suspect]
     Indication: INTENTIONAL SELF-INJURY
     Dosage: DOSE STRENGTH: 2.5 MG/ML
     Route: 048
     Dates: start: 20120507, end: 20120507
  3. CLONAZEPAM [Suspect]
     Indication: DEPRESSION
  4. LEVOPRAID [Suspect]
     Indication: DEPRESSION

REACTIONS (1)
  - HYPOREFLEXIA [None]
